FAERS Safety Report 4578533-7 (Version None)
Quarter: 2005Q1

REPORT INFORMATION
  Report Type: 
  Country: None (occurrence: None)
  Receive Date: 20050207
  Receipt Date: 20050207
  Transmission Date: 20050727
  Serious: Yes (Hospitalization)
  Sender: FDA-Public Use
  Company Number: None

PATIENT
  Age: 10 Year
  Sex: Male
  Weight: 29.6 kg

DRUGS (3)
  1. ABILIFY [Suspect]
     Dosage: 5 MG DAILY PO
     Route: 048
     Dates: start: 20050131, end: 20050202
  2. SEROQUEL [Suspect]
     Dosage: 225 MG / DAY PO
     Route: 048
     Dates: start: 20041101, end: 20050131
  3. ADDERALL XR 25 [Concomitant]

REACTIONS (8)
  - COORDINATION ABNORMAL [None]
  - DROOLING [None]
  - DYSTONIA [None]
  - GAIT DISTURBANCE [None]
  - MUSCLE SPASMS [None]
  - POSTURE ABNORMAL [None]
  - TREMOR [None]
  - VOMITING [None]
